FAERS Safety Report 17781182 (Version 1)
Quarter: 2020Q2

REPORT INFORMATION
  Report Type: Report from Study
  Country: None (occurrence: US)
  Receive Date: 20200514
  Receipt Date: 20200514
  Transmission Date: 20200714
  Serious: Yes (Hospitalization)
  Sender: FDA-Public Use
  Company Number: US-ABBVIE-20K-163-3357385-00

PATIENT
  Age: 39 Year
  Sex: Female
  Weight: 68.1 kg

DRUGS (4)
  1. HUMIRA [Suspect]
     Active Substance: ADALIMUMAB
     Route: 058
     Dates: start: 202003
  2. HUMIRA [Suspect]
     Active Substance: ADALIMUMAB
     Indication: PSORIATIC ARTHROPATHY
     Route: 058
     Dates: start: 20200220, end: 20200220
  3. HUMIRA [Suspect]
     Active Substance: ADALIMUMAB
     Indication: PSORIASIS
     Route: 058
     Dates: start: 2018, end: 201908
  4. FLEXERIL [Concomitant]
     Active Substance: CYCLOBENZAPRINE HYDROCHLORIDE
     Indication: PAIN

REACTIONS (23)
  - Psoriasis [Recovering/Resolving]
  - Self-consciousness [Recovering/Resolving]
  - Peripheral swelling [Unknown]
  - Infection [Recovered/Resolved]
  - Frustration tolerance decreased [Recovering/Resolving]
  - Emotional distress [Recovering/Resolving]
  - Fibromyalgia [Unknown]
  - Emotional disorder [Not Recovered/Not Resolved]
  - Pruritus [Recovered/Resolved]
  - Panic attack [Unknown]
  - Skin irritation [Recovered/Resolved]
  - Arthralgia [Recovering/Resolving]
  - Paraesthesia [Unknown]
  - Impaired quality of life [Recovering/Resolving]
  - Dysuria [Unknown]
  - General physical condition abnormal [Recovering/Resolving]
  - Nodule [Unknown]
  - Anger [Not Recovered/Not Resolved]
  - Pain [Not Recovered/Not Resolved]
  - Arthralgia [Unknown]
  - Hypoaesthesia [Unknown]
  - Abdominal infection [Recovered/Resolved]
  - Helplessness [Recovering/Resolving]

NARRATIVE: CASE EVENT DATE: 201908
